FAERS Safety Report 15208948 (Version 1)
Quarter: 2018Q3

REPORT INFORMATION
  Report Type: Spontaneous
  Country: US (occurrence: US)
  Receive Date: 20180629
  Receipt Date: 20180629
  Transmission Date: 20181010
  Serious: Yes (Other)
  Sender: FDA-Public Use
  Company Number: None

PATIENT
  Age: 63 Year
  Sex: Female
  Weight: 57.15 kg

DRUGS (1)
  1. PROAIR HFA [Suspect]
     Active Substance: ALBUTEROL SULFATE
     Indication: WHEEZING
     Dosage: ?          QUANTITY:2 PUFF(S);OTHER FREQUENCY:Q4H PRN;?
     Route: 055
     Dates: start: 20180623, end: 20180629

REACTIONS (2)
  - Device malfunction [None]
  - Bronchospasm [None]

NARRATIVE: CASE EVENT DATE: 20180623
